FAERS Safety Report 18580140 (Version 1)
Quarter: 2020Q4

REPORT INFORMATION
  Report Type: Spontaneous
  Country: CN (occurrence: CN)
  Receive Date: 20201204
  Receipt Date: 20201204
  Transmission Date: 20210114
  Serious: Yes (Other)
  Sender: FDA-Public Use
  Company Number: CN-BAYER-2020-259113

PATIENT
  Age: 59 Year
  Sex: Male

DRUGS (1)
  1. SORAFENIB (RAF KINASE INHIBITOR) [Suspect]
     Active Substance: SORAFENIB
     Indication: HEAD AND NECK CANCER METASTATIC
     Dosage: 200 MG, BID
     Route: 048

REACTIONS (2)
  - Off label use [None]
  - Swelling face [Recovering/Resolving]
